FAERS Safety Report 8302009-4 (Version None)
Quarter: 2012Q2

REPORT INFORMATION
  Report Type: 
  Country: None (occurrence: None)
  Receive Date: 20120420
  Receipt Date: 20120415
  Transmission Date: 20120825
  Serious: Yes (Death, Other)
  Sender: FDA-Public Use
  Company Number: ES-ABBOTT-12P-144-0926632-00

PATIENT
  Age: 40 Year
  Sex: Male

DRUGS (7)
  1. CYCLOSPORINE [Suspect]
     Indication: DRUG RESISTANCE
     Route: 048
  2. CYCLOSPORINE [Suspect]
     Route: 042
  3. CYCLOSPORINE [Suspect]
  4. THIOPURINES [Suspect]
     Indication: DRUG RESISTANCE
  5. THIOPURINES [Suspect]
     Indication: COLITIS ULCERATIVE
  6. CYCLOSPORINE [Suspect]
     Indication: COLITIS ULCERATIVE
  7. CORTICOSTEROIDS [Suspect]
     Indication: COLITIS ULCERATIVE

REACTIONS (2)
  - DRUG INEFFECTIVE [None]
  - PNEUMONIA [None]
